FAERS Safety Report 21410891 (Version 1)
Quarter: 2022Q4

REPORT INFORMATION
  Report Type: Spontaneous
  Country: US (occurrence: None)
  Receive Date: 20221002
  Receipt Date: 20221002
  Transmission Date: 20230112
  Serious: Yes (Other)
  Sender: FDA-Public Use
  Company Number: None

PATIENT
  Age: 38 Year
  Sex: Female
  Weight: 72 kg

DRUGS (1)
  1. DIETARY SUPPLEMENT [Suspect]
     Active Substance: DIETARY SUPPLEMENT
     Indication: Drug detoxification
     Route: 048

REACTIONS (4)
  - Rash [None]
  - Liver disorder [None]
  - Weight increased [None]
  - Blood aluminium increased [None]

NARRATIVE: CASE EVENT DATE: 20200915
